FAERS Safety Report 25833213 (Version 1)
Quarter: 2025Q3

REPORT INFORMATION
  Report Type: Spontaneous
  Country: US (occurrence: None)
  Receive Date: 20250922
  Receipt Date: 20250922
  Transmission Date: 20251021
  Serious: Yes (Other)
  Sender: FDA-CTU
  Company Number: None

PATIENT
  Age: 41 Year
  Sex: Female
  Weight: 79.47 kg

DRUGS (2)
  1. DUPIXENT [Suspect]
     Active Substance: DUPILUMAB
     Indication: Idiopathic urticaria
     Route: 058
     Dates: start: 20250916
  2. DUPIXENT [Concomitant]
     Active Substance: DUPILUMAB
     Dates: start: 20250916

REACTIONS (5)
  - Sleep apnoea syndrome [None]
  - Peripheral swelling [None]
  - Feeling abnormal [None]
  - Pain in extremity [None]
  - Eye disorder [None]

NARRATIVE: CASE EVENT DATE: 20250916
